FAERS Safety Report 9669813 (Version 1)
Quarter: 2013Q4

REPORT INFORMATION
  Report Type: Other
  Country: DK (occurrence: US)
  Receive Date: 20131105
  Receipt Date: 20131105
  Transmission Date: 20140711
  Serious: Yes (Hospitalization)
  Sender: FDA-Public Use
  Company Number: US-FRI-1000050754

PATIENT
  Age: 57 Year
  Sex: Female

DRUGS (5)
  1. CITALOPRAM [Suspect]
     Indication: DEPRESSION
     Dosage: 40 MG
  2. CITALOPRAM [Suspect]
     Indication: DEPRESSION
     Dosage: 60 MG
  3. BUPRENORPHINE [Suspect]
     Indication: DRUG DEPENDENCE
     Dosage: 24 MG
  4. BUPROPION [Concomitant]
     Indication: DEPRESSION
     Dosage: 400 MG
  5. MIRTAZAPINE [Concomitant]
     Indication: DEPRESSION
     Dosage: 15 MG

REACTIONS (3)
  - Cerebral vasoconstriction [Unknown]
  - Serotonin syndrome [Unknown]
  - Overdose [Unknown]
